FAERS Safety Report 23192125 (Version 2)
Quarter: 2025Q1

REPORT INFORMATION
  Report Type: Report from Study
  Country: GB (occurrence: GB)
  Receive Date: 20231116
  Receipt Date: 20250226
  Transmission Date: 20250409
  Serious: Yes (Other)
  Sender: NOVARTIS
  Company Number: GB-002147023-NVSC2023GB068606

PATIENT
  Sex: Female

DRUGS (2)
  1. COSENTYX [Suspect]
     Active Substance: SECUKINUMAB
     Indication: Ankylosing spondylitis
     Dosage: 300 MG, QMO
     Route: 058
     Dates: start: 2019
  2. COSENTYX [Suspect]
     Active Substance: SECUKINUMAB
     Dosage: 300 MG, QMO
     Route: 058
     Dates: start: 20200318

REACTIONS (7)
  - Neoplasm malignant [Unknown]
  - Renal failure [Unknown]
  - Feeling abnormal [Unknown]
  - Pain [Unknown]
  - Mobility decreased [Unknown]
  - Urinary tract infection [Unknown]
  - Dehydration [Unknown]
